FAERS Safety Report 22201325 (Version 1)
Quarter: 2023Q2

REPORT INFORMATION
  Report Type: Report from Study
  Country: IN (occurrence: IN)
  Receive Date: 20230412
  Receipt Date: 20230412
  Transmission Date: 20230722
  Serious: Yes (Hospitalization, Disabling)
  Sender: FDA-Public Use
  Company Number: None

PATIENT
  Age: 58 Year
  Sex: Female

DRUGS (1)
  1. DEXAMETHASONE [Suspect]
     Active Substance: DEXAMETHASONE
     Indication: COVID-19
     Dosage: 8 MILLIGRAM, BID
     Route: 042
     Dates: start: 202105

REACTIONS (3)
  - Rhinocerebral mucormycosis [Unknown]
  - Cutaneous mucormycosis [Unknown]
  - Blindness [Unknown]

NARRATIVE: CASE EVENT DATE: 20210501
